FAERS Safety Report 6571782-8 (Version None)
Quarter: 2010Q1

REPORT INFORMATION
  Report Type: 
  Country: None (occurrence: None)
  Receive Date: 20100205
  Receipt Date: 20100202
  Transmission Date: 20100710
  Serious: Yes (Death, Life-Threatening)
  Sender: FDA-Public Use
  Company Number: CA-ASTRAZENECA-2010SE04558

PATIENT
  Age: 6 Year
  Sex: Male
  Weight: 24 kg

DRUGS (12)
  1. BUPIVACAINE HCL [Suspect]
     Route: 008
  2. BUPIVACAINE HCL [Suspect]
     Route: 008
  3. VALPROIC ACID [Concomitant]
  4. CLONAZEPAM [Concomitant]
  5. PHENOBARBITAL TAB [Concomitant]
     Indication: CONVULSION
  6. PROPOFOL [Concomitant]
     Indication: GENERAL ANAESTHESIA
     Route: 042
  7. FENTANYL [Concomitant]
     Indication: GENERAL ANAESTHESIA
     Route: 042
  8. FENTANYL [Concomitant]
     Route: 008
  9. ROCURONIUM [Concomitant]
     Indication: GENERAL ANAESTHESIA
     Route: 042
  10. ISOFLURANE [Concomitant]
     Indication: MAINTENANCE OF ANAESTHESIA
  11. NITROUS OXIDE [Concomitant]
     Indication: MAINTENANCE OF ANAESTHESIA
  12. OXYGEN [Concomitant]
     Indication: MAINTENANCE OF ANAESTHESIA

REACTIONS (3)
  - CARDIAC ARREST [None]
  - CARDIOTOXICITY [None]
  - ISCHAEMIC CEREBRAL INFARCTION [None]
